FAERS Safety Report 6537181-X (Version None)
Quarter: 2010Q1

REPORT INFORMATION
  Report Type: 
  Country: None (occurrence: None)
  Receive Date: 20100114
  Receipt Date: 20091211
  Transmission Date: 20100710
  Serious: Yes (Hospitalization)
  Sender: FDA-Public Use
  Company Number: FR-CELGENEUS-056-50794-09090654

PATIENT
  Sex: Male
  Weight: 91 kg

DRUGS (2)
  1. VIDAZA [Suspect]
     Route: 058
     Dates: start: 20090330, end: 20090731
  2. LASILIX [Concomitant]
     Indication: DRUG USE FOR UNKNOWN INDICATION
     Route: 065

REACTIONS (2)
  - LUNG DISORDER [None]
  - LYMPHOPENIA [None]
